FAERS Safety Report 6904974-6 (Version None)
Quarter: 2010Q3

REPORT INFORMATION
  Report Type: 
  Country: None (occurrence: None)
  Receive Date: 20100804
  Receipt Date: 20090818
  Transmission Date: 20110219
  Serious: No
  Sender: FDA-Public Use
  Company Number: US-PFIZER INC-2009238511

PATIENT
  Sex: Female
  Weight: 118 kg

DRUGS (6)
  1. LYRICA [Suspect]
     Indication: FIBROMYALGIA
     Dosage: 50 MG, 1X/DAY
     Dates: start: 20090629, end: 20090709
  2. XANAX [Concomitant]
     Dosage: 0.25 MG, UNK
  3. ZIAC [Concomitant]
     Dosage: [BISOPROLOL 10MG]/[HYDROCHLOROTHIAZIDE 6.25MG]
  4. DILTIAZEM [Concomitant]
     Dosage: 60 MG, UNK
  5. FLUOXETINE [Concomitant]
     Dosage: 40 MG, UNK
  6. IBUPROFEN [Concomitant]
     Dosage: UNK

REACTIONS (6)
  - BLOOD GLUCOSE ABNORMAL [None]
  - DIZZINESS [None]
  - NERVOUSNESS [None]
  - SOMNOLENCE [None]
  - URINARY INCONTINENCE [None]
  - VISION BLURRED [None]
